FAERS Safety Report 11356813 (Version 1)
Quarter: 2015Q3

REPORT INFORMATION
  Report Type: Spontaneous
  Country: US (occurrence: US)
  Receive Date: 20150803
  Receipt Date: 20150803
  Transmission Date: 20151125
  Serious: Yes (Other)
  Sender: FDA-Public Use
  Company Number: US-ELI_LILLY_AND_COMPANY-US201212003682

PATIENT
  Age: 30 Year
  Sex: Male

DRUGS (4)
  1. ZYPREXA [Suspect]
     Active Substance: OLANZAPINE
     Dosage: 30 MG, QD
     Dates: start: 201202, end: 201206
  2. ZYPREXA [Suspect]
     Active Substance: OLANZAPINE
     Dosage: 20 MG, QD
     Dates: start: 201206, end: 201208
  3. GEODON [Concomitant]
     Active Substance: ZIPRASIDONE HYDROCHLORIDE\ZIPRASIDONE MESYLATE
  4. ZYPREXA [Suspect]
     Active Substance: OLANZAPINE
     Indication: SCHIZOAFFECTIVE DISORDER
     Dosage: 20 MG, QD
     Dates: start: 201111, end: 201202

REACTIONS (4)
  - Prescribed overdose [Unknown]
  - Weight increased [Not Recovered/Not Resolved]
  - Extrapyramidal disorder [Unknown]
  - Blood prolactin abnormal [Unknown]

NARRATIVE: CASE EVENT DATE: 201202
